FAERS Safety Report 6611305-8 (Version None)
Quarter: 2010Q1

REPORT INFORMATION
  Report Type: 
  Country: None (occurrence: None)
  Receive Date: 20100222
  Receipt Date: 20100212
  Transmission Date: 20100710
  Serious: Yes (Disabling)
  Sender: FDA-Public Use
  Company Number: 2010SP009199

PATIENT
  Age: 42 Year
  Sex: Female

DRUGS (1)
  1. TEMODAL [Suspect]
     Indication: ASTROCYTOMA
     Dosage: 310 MG; PO
     Route: 048
     Dates: start: 20091201

REACTIONS (1)
  - IMPAIRED WORK ABILITY [None]
